FAERS Safety Report 19184445 (Version 2)
Quarter: 2021Q2

REPORT INFORMATION
  Report Type: Spontaneous
  Country: US (occurrence: US)
  Receive Date: 20210427
  Receipt Date: 20210503
  Transmission Date: 20210717
  Serious: No
  Sender: FDA-Public Use
  Company Number: US-SA-2021SA136028

PATIENT
  Age: 22 Year
  Sex: Female

DRUGS (1)
  1. DUPIXENT [Suspect]
     Active Substance: DUPILUMAB
     Indication: DERMATITIS ATOPIC
     Dosage: 300 MG, QOW
     Route: 058
     Dates: start: 20210310

REACTIONS (5)
  - Flatulence [Unknown]
  - Abdominal discomfort [Unknown]
  - Gastrointestinal tract irritation [Unknown]
  - Muscle spasms [Unknown]
  - Abdominal distension [Unknown]

NARRATIVE: CASE EVENT DATE: 2021
